FAERS Safety Report 6344710-8 (Version None)
Quarter: 2009Q3

REPORT INFORMATION
  Report Type: 
  Country: None (occurrence: None)
  Receive Date: 20090908
  Receipt Date: 20090225
  Transmission Date: 20100115
  Serious: Yes (Hospitalization)
  Sender: FDA-Public Use
  Company Number: JP-GENENTECH-289837

PATIENT
  Age: 35 Year
  Sex: Female

DRUGS (7)
  1. RITUXIMAB [Suspect]
     Indication: LYMPHOMA
  2. CYCLOPHOSPHAMIDE [Concomitant]
     Indication: LYMPHOMA
  3. DOXORUBICIN HCL [Concomitant]
     Indication: LYMPHOMA
  4. VINCRISTINE [Concomitant]
     Indication: LYMPHOMA
  5. DEXAMETHASONE [Concomitant]
     Indication: LYMPHOMA
  6. METHOTREXATE [Concomitant]
     Indication: LYMPHOMA
  7. CYTARABINE [Concomitant]
     Indication: LYMPHOMA

REACTIONS (1)
  - ACUTE PROMYELOCYTIC LEUKAEMIA [None]
